FAERS Safety Report 23903552 (Version 1)
Quarter: 2024Q2

REPORT INFORMATION
  Report Type: Spontaneous
  Country: AU (occurrence: AU)
  Receive Date: 20240527
  Receipt Date: 20240527
  Transmission Date: 20240716
  Serious: Yes (Other)
  Sender: FDA-Public Use
  Company Number: AU-ASTELLAS-2024US014831

PATIENT
  Sex: Female

DRUGS (3)
  1. TACROLIMUS [Suspect]
     Active Substance: TACROLIMUS
     Indication: Renal transplant
     Dosage: UNK UNK, UNKNOWN FREQ.
     Route: 064
  2. TACROLIMUS [Suspect]
     Active Substance: TACROLIMUS
     Dosage: 12.5 MG, TOTAL DOSE DAILY
     Route: 064
  3. TACROLIMUS [Suspect]
     Active Substance: TACROLIMUS
     Dosage: UNK UNK, UNKNOWN FREQ. (REDUCED DOSE)
     Route: 064

REACTIONS (3)
  - Low birth weight baby [Unknown]
  - Premature baby [Unknown]
  - Foetal exposure during pregnancy [Unknown]
